FAERS Safety Report 24326145 (Version 2)
Quarter: 2024Q3

REPORT INFORMATION
  Report Type: Report from Study
  Country: US (occurrence: US)
  Receive Date: 20240917
  Receipt Date: 20240927
  Transmission Date: 20241016
  Serious: Yes (Hospitalization)
  Sender: TEVA
  Company Number: US-TEVA-VS-3243044

PATIENT
  Sex: Male

DRUGS (1)
  1. NICOTINIC ACID [Suspect]
     Active Substance: NIACIN
     Indication: Vitamin supplementation
     Dosage: NIACIN
     Route: 065

REACTIONS (2)
  - Drug-induced liver injury [Recovered/Resolved]
  - Drug abuse [Unknown]
